FAERS Safety Report 9152311 (Version 1)
Quarter: 2013Q1

REPORT INFORMATION
  Report Type: Spontaneous
  Country: US (occurrence: US)
  Receive Date: 20130308
  Receipt Date: 20130308
  Transmission Date: 20140127
  Serious: Yes (Hospitalization, Other)
  Sender: FDA-Public Use
  Company Number: US-TEVA-390073USA

PATIENT
  Age: 79 Year
  Sex: Female

DRUGS (8)
  1. DONEPEZIL [Suspect]
     Indication: DEPRESSION
     Dosage: 5MG; INCREASED TO 10MG
     Route: 065
  2. DONEPEZIL [Suspect]
     Indication: ANXIETY
     Dosage: 10MG
     Route: 065
  3. DONEPEZIL [Suspect]
     Dosage: 10MG
     Route: 065
  4. MIRTAZAPINE [Suspect]
     Indication: DEPRESSION
     Dosage: 30 MG/DAY; INCREASED TO 45 MG/DAY
     Route: 065
  5. MIRTAZAPINE [Suspect]
     Indication: ANXIETY
     Dosage: 45 MG/DAY
     Route: 065
  6. MIRTAZAPINE [Suspect]
     Dosage: 45 MG/DAY
     Route: 065
  7. ESZOPICLONE [Concomitant]
     Indication: DEPRESSION
     Dosage: 2MG
     Route: 065
  8. ESZOPICLONE [Concomitant]
     Indication: ANXIETY
     Dosage: 2MG
     Route: 065

REACTIONS (1)
  - Encephalopathy [Recovering/Resolving]
